FAERS Safety Report 10438587 (Version 1)
Quarter: 2014Q3

REPORT INFORMATION
  Report Type: Spontaneous
  Country: US (occurrence: None)
  Receive Date: 20140905
  Receipt Date: 20140905
  Transmission Date: 20150326
  Serious: Yes (Death)
  Sender: FDA-Public Use
  Company Number: None

PATIENT
  Sex: Male
  Weight: 93.9 kg

DRUGS (4)
  1. WARFARIN [Concomitant]
     Active Substance: WARFARIN
  2. SOVALDI [Suspect]
     Active Substance: SOFOSBUVIR
     Indication: HEPATITIS
     Route: 048
     Dates: start: 20140523, end: 20140718
  3. RIBASPHERE [Suspect]
     Active Substance: RIBAVIRIN
     Dosage: 600 MG, TABLET, TWICE DAILY, BY MOUTH W/ FOOD
     Route: 048
     Dates: start: 20140523, end: 20140718
  4. ATENOLOL. [Concomitant]
     Active Substance: ATENOLOL

REACTIONS (2)
  - Insomnia [None]
  - Fatigue [None]
